FAERS Safety Report 9755445 (Version 1)
Quarter: 2013Q4

REPORT INFORMATION
  Report Type: Spontaneous
  Country: US (occurrence: US)
  Receive Date: 20131213
  Receipt Date: 20131213
  Transmission Date: 20140711
  Serious: No
  Sender: FDA-Public Use
  Company Number: US-GLAXOSMITHKLINE-A1018197A

PATIENT
  Age: 63 Year
  Sex: Female

DRUGS (6)
  1. NICODERM CQ CLEAR 21MG [Suspect]
     Indication: EX-TOBACCO USER
     Dates: start: 20130331, end: 20130331
  2. NICODERM CQ 21MG [Suspect]
     Indication: EX-TOBACCO USER
     Dates: start: 20130331, end: 20130331
  3. NICODERM CQ CLEAR 14MG [Suspect]
     Indication: EX-TOBACCO USER
     Dates: start: 20130401, end: 20130401
  4. DIAZEPAM [Concomitant]
  5. NORVASC [Concomitant]
  6. LISINOPRIL [Concomitant]

REACTIONS (6)
  - Nervousness [Not Recovered/Not Resolved]
  - Palpitations [Recovered/Resolved]
  - Feeling abnormal [Not Recovered/Not Resolved]
  - Psychomotor hyperactivity [Not Recovered/Not Resolved]
  - Tremor [Not Recovered/Not Resolved]
  - Drug administration error [Unknown]
